FAERS Safety Report 6462106-5 (Version None)
Quarter: 2009Q4

REPORT INFORMATION
  Report Type: 
  Country: None (occurrence: None)
  Receive Date: 20091124
  Receipt Date: 20091112
  Transmission Date: 20100525
  Serious: Yes (Other)
  Sender: FDA-Public Use
  Company Number: TPA2009A01114

PATIENT
  Age: 69 Year
  Sex: Female
  Weight: 62.1428 kg

DRUGS (12)
  1. ULORIC [Suspect]
     Indication: GOUT
     Dosage: 40 MG, 1 IN 1 D, PER ORAL, 80 MG, 1 IN 1 D, PER ORAL
     Route: 048
     Dates: start: 20090414, end: 20090427
  2. ULORIC [Suspect]
     Indication: GOUT
     Dosage: 40 MG, 1 IN 1 D, PER ORAL, 80 MG, 1 IN 1 D, PER ORAL
     Route: 048
     Dates: start: 20090428, end: 20090504
  3. COLCHICINE (COLCHICINE) [Concomitant]
  4. DIOVAN [Concomitant]
  5. FLEXERIL (CYCOLOBENZAPRINE HYDROCHLORIDE) [Concomitant]
  6. LIMBREL (ALL OTHER THERAPEUTIC PRODUCTS) [Concomitant]
  7. METOPROLOL (METOPROLOL) [Concomitant]
  8. PLAVIX [Concomitant]
  9. PRAVACHOL [Concomitant]
  10. TYLENOL [Concomitant]
  11. VOLTAREN (DICLOFENAC DIETHYLAMINE) [Concomitant]
  12. ZEMPLAR [Concomitant]

REACTIONS (1)
  - TOXIC EPIDERMAL NECROLYSIS [None]
